FAERS Safety Report 4702494-0 (Version None)
Quarter: 2005Q2

REPORT INFORMATION
  Report Type: 
  Country: None (occurrence: None)
  Receive Date: 20050629
  Receipt Date: 20050620
  Transmission Date: 20051028
  Serious: Yes (Hospitalization)
  Sender: FDA-Public Use
  Company Number: US-JNJFOC-20050606093

PATIENT
  Sex: Male
  Weight: 70.31 kg

DRUGS (2)
  1. REMICADE [Suspect]
     Route: 042
  2. REMICADE [Suspect]
     Indication: DRUG USE FOR UNKNOWN INDICATION
     Dosage: FOR A ^WHILE^
     Route: 042

REACTIONS (2)
  - ASTHENIA [None]
  - HOSPITALISATION [None]
